FAERS Safety Report 4397509-6 (Version None)
Quarter: 2004Q2

REPORT INFORMATION
  Report Type: 
  Country: None (occurrence: None)
  Receive Date: 20040621
  Receipt Date: 20031219
  Transmission Date: 20050107
  Serious: Yes (Other)
  Sender: FDA-Public Use
  Company Number: USA-2003-0012368

PATIENT
  Age: 20 Year
  Sex: Female

DRUGS (3)
  1. OXYCONTIN [Suspect]
     Indication: PAIN
     Dosage: UNK UNK, UNK; UNKNOWN
     Route: 065
  2. ROXICODONE (OXYCODONE HYDROCHLORIDE) [Suspect]
     Dosage: UNK UNK, UNK; UNKNOWN
     Route: 065
  3. HYDROCODONE BITARTRATE (SIMILAR TO IND 59,175) UNKNOWN [Concomitant]

REACTIONS (3)
  - DRUG ABUSER [None]
  - DRUG DEPENDENCE [None]
  - DRUG WITHDRAWAL SYNDROME [None]
